FAERS Safety Report 23354942 (Version 1)
Quarter: 2024Q1

REPORT INFORMATION
  Report Type: Spontaneous
  Country: DE (occurrence: DE)
  Receive Date: 20240101
  Receipt Date: 20240101
  Transmission Date: 20240410
  Serious: Yes (Hospitalization, Other)
  Sender: FDA-Public Use
  Company Number: DE-002147023-NVSC2021DE039202

PATIENT
  Sex: Female

DRUGS (10)
  1. ASPIRIN [Suspect]
     Active Substance: ASPIRIN
     Indication: Stenosis
     Dosage: 100 MG
     Route: 065
  2. DICLOFENAC [Suspect]
     Active Substance: DICLOFENAC
     Dosage: 145.6 MG, QD
     Route: 065
     Dates: start: 20210208
  3. DICLOFENAC [Suspect]
     Active Substance: DICLOFENAC
     Indication: Product used for unknown indication
     Dosage: 145.6 MG, BID
     Route: 065
     Dates: start: 20210203, end: 20210207
  4. DICLOFENAC [Suspect]
     Active Substance: DICLOFENAC
     Dosage: 100 UNK
     Route: 065
  5. DICLOFENAC [Suspect]
     Active Substance: DICLOFENAC
     Dosage: 145.6 MG, QD
     Route: 065
     Dates: start: 20210208
  6. DICLOFENAC [Suspect]
     Active Substance: DICLOFENAC
     Indication: Product used for unknown indication
     Dosage: 145.6 MG, BID
     Route: 065
     Dates: start: 20210203, end: 20210207
  7. LEVOTHYROXINE [Concomitant]
     Active Substance: LEVOTHYROXINE
     Indication: Product used for unknown indication
     Dosage: 125 UG (10 YEARS AGO)
     Route: 065
  8. PANTOPRAZOLE [Concomitant]
     Active Substance: PANTOPRAZOLE
     Indication: Product used for unknown indication
     Dosage: UNK
     Route: 065
  9. ACETAMINOPHEN [Concomitant]
     Active Substance: ACETAMINOPHEN
     Indication: Product used for unknown indication
     Dosage: UNK, BID ,STRENGTH-125MG/ML,1000MG/ML,10MG/ML,500MG/ML,75MG/ML,250MG/ML,40MG/ML
     Route: 065
  10. PREGABALIN [Concomitant]
     Active Substance: PREGABALIN
     Indication: Product used for unknown indication
     Dosage: UNK AS NEEDED
     Route: 065

REACTIONS (7)
  - Diaphragmatic hernia [Unknown]
  - Tachycardia [Unknown]
  - Gastric ulcer [Unknown]
  - Haemorrhage [Unknown]
  - Diarrhoea haemorrhagic [Unknown]
  - Thyroid hormones decreased [Unknown]
  - Haemoglobin abnormal [Unknown]

NARRATIVE: CASE EVENT DATE: 20210208
